FAERS Safety Report 9485944 (Version 1)
Quarter: 2013Q3

REPORT INFORMATION
  Report Type: Spontaneous
  Country: DK (occurrence: DK)
  Receive Date: 20130829
  Receipt Date: 20130829
  Transmission Date: 20140515
  Serious: Yes (Hospitalization, Other)
  Sender: FDA-Public Use
  Company Number: DK-009507513-1308USA011184

PATIENT
  Age: 84 Year
  Sex: Female

DRUGS (5)
  1. FOSAMAX [Suspect]
     Indication: OSTEOPOROSIS
     Dosage: 70 MG, QW
     Route: 048
     Dates: start: 2002, end: 2007
  2. PROLIA [Suspect]
     Indication: OSTEOPOROSIS
     Dosage: 60 MG/ML, Q6M, UNKNOWN ROUTE
     Dates: start: 20110622, end: 20120701
  3. ACLASTA [Suspect]
     Indication: OSTEOPOROSIS
     Dosage: 5 MG/100 ML, UNKNOWN FREQUENCY
  4. HEXALID [Concomitant]
  5. FURIX [Concomitant]

REACTIONS (2)
  - Bone debridement [Unknown]
  - Osteonecrosis of jaw [Recovered/Resolved with Sequelae]
